FAERS Safety Report 9245588 (Version 2)
Quarter: 2013Q2

REPORT INFORMATION
  Report Type: Spontaneous
  Country: US (occurrence: US)
  Receive Date: 20130422
  Receipt Date: 20130613
  Transmission Date: 20140414
  Serious: No
  Sender: FDA-Public Use
  Company Number: US-PFIZER INC-2013121232

PATIENT
  Age: 71 Year
  Sex: Female
  Weight: 70.3 kg

DRUGS (1)
  1. PREMPRO [Suspect]
     Indication: HOT FLUSH
     Dosage: 0.45/1.5 MG, 1X/DAY
     Route: 048
     Dates: start: 2003

REACTIONS (4)
  - Upper respiratory tract congestion [Unknown]
  - Increased upper airway secretion [Unknown]
  - Dysphonia [Unknown]
  - Nasopharyngitis [Unknown]
